FAERS Safety Report 22667146 (Version 4)
Quarter: 2023Q4

REPORT INFORMATION
  Report Type: Spontaneous
  Country: ES (occurrence: ES)
  Receive Date: 20230704
  Receipt Date: 20231222
  Transmission Date: 20240110
  Serious: Yes (Other)
  Sender: FDA-Public Use
  Company Number: ES-KOREA IPSEN Pharma-2023-15980

PATIENT
  Age: 55 Year
  Sex: Male

DRUGS (4)
  1. BOTULINUM TOXIN TYPE A [Suspect]
     Active Substance: BOTULINUM TOXIN TYPE A
     Indication: Skin wrinkling
     Route: 058
     Dates: start: 20211018, end: 20211018
  2. BOTULINUM TOXIN TYPE A [Suspect]
     Active Substance: BOTULINUM TOXIN TYPE A
     Indication: Skin wrinkling
     Route: 058
     Dates: start: 20211118, end: 20211118
  3. BOTULINUM TOXIN TYPE A [Suspect]
     Active Substance: BOTULINUM TOXIN TYPE A
     Indication: Off label use
     Route: 058
     Dates: start: 20211120, end: 20211120
  4. PREDNISONE [Concomitant]
     Active Substance: PREDNISONE
     Dosage: PREDNISONE 10 MG PER DAY

REACTIONS (4)
  - Scleroderma [Not Recovered/Not Resolved]
  - Off label use [Unknown]
  - Incorrect route of product administration [Unknown]
  - Off label use [Unknown]

NARRATIVE: CASE EVENT DATE: 20211118
